FAERS Safety Report 10444070 (Version 1)
Quarter: 2014Q3

REPORT INFORMATION
  Report Type: Spontaneous
  Country: US (occurrence: US)
  Receive Date: 20140910
  Receipt Date: 20140910
  Transmission Date: 20150326
  Serious: No
  Sender: FDA-Public Use
  Company Number: US-VIIV HEALTHCARE LIMITED-A1073140A

PATIENT
  Age: 61 Year
  Sex: Male

DRUGS (6)
  1. PROBIOTICS [Concomitant]
     Active Substance: PROBIOTICS NOS
  2. ALEVE [Concomitant]
     Active Substance: NAPROXEN SODIUM
  3. TIVICAY [Suspect]
     Active Substance: DOLUTEGRAVIR SODIUM
     Indication: HIV INFECTION
     Dosage: 25MG PER DAY
     Route: 048
     Dates: start: 20140503
  4. ADVIL [Concomitant]
     Active Substance: IBUPROFEN
  5. PREZISTA [Concomitant]
     Active Substance: DARUNAVIR ETHANOLATE
     Dosage: 800MG PER DAY
  6. NORVIR [Concomitant]
     Active Substance: RITONAVIR
     Dosage: 100MG PER DAY

REACTIONS (3)
  - Pain [Unknown]
  - Erythema [Unknown]
  - Seborrhoeic dermatitis [Unknown]
